FAERS Safety Report 18704296 (Version 3)
Quarter: 2021Q1

REPORT INFORMATION
  Report Type: Report from Study
  Country: US (occurrence: US)
  Receive Date: 20210106
  Receipt Date: 20210125
  Transmission Date: 20210419
  Serious: Yes (Death, Hospitalization, Other)
  Sender: FDA-Public Use
  Company Number: US-GILEAD-2021-0511541

PATIENT
  Age: 84 Year
  Sex: Female

DRUGS (2)
  1. UPTRAVI [Concomitant]
     Active Substance: SELEXIPAG
  2. AMBRISENTAN [Suspect]
     Active Substance: AMBRISENTAN
     Indication: PULMONARY ARTERIAL HYPERTENSION
     Dosage: 10 MG, QD
     Route: 048
     Dates: start: 20190610

REACTIONS (7)
  - Fall [Unknown]
  - Surgery [Unknown]
  - Respiratory failure [Unknown]
  - Craniotomy [Unknown]
  - Mechanical ventilation [Not Recovered/Not Resolved]
  - Head injury [Not Recovered/Not Resolved]
  - Death [Fatal]
